FAERS Safety Report 6427574-3 (Version None)
Quarter: 2009Q4

REPORT INFORMATION
  Report Type: 
  Country: None (occurrence: None)
  Receive Date: 20091030
  Receipt Date: 20091019
  Transmission Date: 20100525
  Serious: Yes (Hospitalization, Other)
  Sender: FDA-Public Use
  Company Number: 2009-200082-NL

PATIENT
  Sex: Female
  Weight: 71.6683 kg

DRUGS (9)
  1. NUVARING [Suspect]
     Indication: DRUG USE FOR UNKNOWN INDICATION
     Dosage: 1 DF
     Dates: start: 20020101, end: 20060101
  2. NUVARING [Suspect]
     Indication: DRUG USE FOR UNKNOWN INDICATION
     Dosage: 1 DF
     Dates: start: 20060101
  3. ALBUTEROL [Concomitant]
  4. VITAMIN TAB [Concomitant]
  5. LOTRIMIN [Concomitant]
  6. BENADRYL [Concomitant]
  7. FLAGYL [Concomitant]
  8. FLEXERIL [Concomitant]
  9. ZOLOFT [Concomitant]

REACTIONS (9)
  - ABORTION SPONTANEOUS [None]
  - DRUG EXPOSURE DURING PREGNANCY [None]
  - HYPERTENSION [None]
  - MIGRAINE [None]
  - OVARIAN CYST [None]
  - PRE-ECLAMPSIA [None]
  - PULMONARY EMBOLISM [None]
  - THROMBOSIS [None]
  - UNINTENDED PREGNANCY [None]
